FAERS Safety Report 6717907-2 (Version None)
Quarter: 2010Q2

REPORT INFORMATION
  Report Type: 
  Country: None (occurrence: None)
  Receive Date: 20100510
  Receipt Date: 20100425
  Transmission Date: 20101027
  Serious: Yes (Other)
  Sender: FDA-Public Use
  Company Number: PHHY2010IL26115

PATIENT
  Age: 65 Year
  Sex: Female

DRUGS (1)
  1. ESTRADERM [Suspect]
     Indication: MENOPAUSE
     Dosage: 50 MG, UNK
     Route: 062

REACTIONS (1)
  - BENIGN NEOPLASM OF SKIN [None]
